FAERS Safety Report 25541284 (Version 1)
Quarter: 2025Q3

REPORT INFORMATION
  Report Type: Spontaneous
  Country: US (occurrence: US)
  Receive Date: 20250711
  Receipt Date: 20250711
  Transmission Date: 20251021
  Serious: Yes (Other)
  Sender: BRISTOL-MYERS SQUIBB COMPANY
  Company Number: US-BRISTOL-MYERS SQUIBB COMPANY-2025-096550

PATIENT
  Age: 53 Year
  Sex: Male
  Weight: 97.52 kg

DRUGS (2)
  1. SPRYCEL [Suspect]
     Active Substance: DASATINIB
     Indication: Chronic myeloid leukaemia
     Route: 048
     Dates: start: 2014
  2. SPRYCEL [Suspect]
     Active Substance: DASATINIB
     Route: 048

REACTIONS (12)
  - Loss of consciousness [Unknown]
  - Hypotension [Unknown]
  - Nausea [Unknown]
  - Headache [Unknown]
  - Malaise [Unknown]
  - Fatigue [Unknown]
  - Anxiety [Unknown]
  - Off label use [Unknown]
  - Night sweats [Unknown]
  - Dyspnoea [Unknown]
  - Constipation [Recovering/Resolving]
  - Toxicity to various agents [Unknown]
